FAERS Safety Report 8008891-2 (Version None)
Quarter: 2011Q4

REPORT INFORMATION
  Report Type: 
  Country: None (occurrence: None)
  Receive Date: 20111221
  Receipt Date: 20111213
  Transmission Date: 20120403
  Serious: Yes (Other)
  Sender: FDA-Public Use
  Company Number: AUR-APL-2011-06129

PATIENT
  Age: 83 Year
  Sex: Female
  Weight: 64.9 kg

DRUGS (4)
  1. AMLODIPINE [Suspect]
     Indication: PRODUCT USED FOR UNKNOWN INDICATION
     Dosage: (5 MG), ORAL
     Route: 048
  2. BECONASE [Concomitant]
  3. AMLODIPINE [Concomitant]
  4. BENDROFLUMETHIAZIDE [Concomitant]

REACTIONS (7)
  - DIZZINESS [None]
  - PHOTOPHOBIA [None]
  - LOCAL SWELLING [None]
  - EYE PAIN [None]
  - HEADACHE [None]
  - SWELLING FACE [None]
  - SINUS DISORDER [None]
